FAERS Safety Report 8477200-7 (Version None)
Quarter: 2012Q2

REPORT INFORMATION
  Report Type: 
  Country: None (occurrence: None)
  Receive Date: 20120619
  Receipt Date: 20120619
  Transmission Date: 20120825
  Serious: Yes (Other)
  Sender: FDA-Public Use
  Company Number: None

PATIENT
  Sex: Male

DRUGS (7)
  1. ALLOPURINORL [Concomitant]
  2. QUETIAPINE FUMARATE [Suspect]
     Indication: INSOMNIA
     Dosage: 25 MG ONCE A DAY PO
     Route: 048
  3. ATORVASTATIN CALCIUM [Concomitant]
  4. CALCITRIOL [Concomitant]
  5. AMLODIPINE DESYALTE [Concomitant]
  6. ASPIRIN [Concomitant]
  7. CYANOCOBALAMIN [Concomitant]

REACTIONS (2)
  - FEELING ABNORMAL [None]
  - SOMNOLENCE [None]
